FAERS Safety Report 6537798-2 (Version None)
Quarter: 2010Q1

REPORT INFORMATION
  Report Type: 
  Country: None (occurrence: None)
  Receive Date: 20100114
  Receipt Date: 20100105
  Transmission Date: 20100710
  Serious: Yes (Life-Threatening, Hospitalization)
  Sender: FDA-Public Use
  Company Number: IE-PFIZER INC-2009295927

PATIENT
  Age: 64 Year
  Sex: Female
  Weight: 70 kg

DRUGS (9)
  1. ZYVOX [Suspect]
     Indication: STAPHYLOCOCCAL INFECTION
     Dosage: 600 MG, 2X/DAY
     Route: 042
     Dates: start: 20090629, end: 20090709
  2. ZYVOX [Suspect]
     Indication: PNEUMONIA
  3. VANCOMYCIN [Concomitant]
  4. TAZOCIN [Concomitant]
     Dosage: 4.5 G, 2X/DAY
     Route: 042
     Dates: start: 20090625
  5. CLARITHROMYCIN [Concomitant]
     Dosage: UNK
     Route: 042
     Dates: start: 20090628, end: 20090707
  6. CASPOFUNGIN [Concomitant]
     Indication: STAPHYLOCOCCAL INFECTION
     Dosage: UNK
     Route: 042
     Dates: start: 20090702, end: 20090707
  7. CASPOFUNGIN [Concomitant]
     Indication: PNEUMONIA
  8. ACYCLOVIR [Concomitant]
     Dosage: UNK
     Route: 042
     Dates: start: 20090707
  9. MEROPENEM [Concomitant]
     Dosage: UNK
     Route: 042
     Dates: start: 20090706

REACTIONS (3)
  - GINGIVAL BLEEDING [None]
  - PETECHIAE [None]
  - THROMBOCYTOPENIA [None]
